FAERS Safety Report 7725542-2 (Version None)
Quarter: 2011Q3

REPORT INFORMATION
  Report Type: 
  Country: None (occurrence: None)
  Receive Date: 20110830
  Receipt Date: 20110817
  Transmission Date: 20111222
  Serious: Yes (Life-Threatening, Other)
  Sender: FDA-Public Use
  Company Number: 2011P1008439

PATIENT
  Age: 62 Year
  Sex: Male

DRUGS (3)
  1. FENTANYL [Suspect]
     Indication: ANAESTHESIA
     Dosage: 100 UG;X1;IV
     Route: 042
     Dates: start: 20110719, end: 20110719
  2. LIPURO (PROPOFOL) [Suspect]
     Indication: ANAESTHESIA
     Dosage: 200 MG;X1; IV
     Route: 042
     Dates: start: 20110719, end: 20110719
  3. ROCURONIUM BROMIDE [Suspect]
     Indication: ANAESTHESIA
     Dosage: 40 MG;X1;IV
     Route: 042
     Dates: start: 20110719, end: 20110719

REACTIONS (2)
  - BLOOD PRESSURE DECREASED [None]
  - BRONCHOSPASM [None]
